FAERS Safety Report 6217688 (Version 16)
Quarter: 2013Q4

REPORT INFORMATION
  Report Type: Spontaneous
  Country: US (occurrence: US)
  Receive Date: 20070118
  Receipt Date: 20131003
  Transmission Date: 20140711
  Serious: Yes (Death, Hospitalization, Other)
  Sender: FDA-Public Use
  Company Number: PHEH2007US00637

PATIENT
  Age: 51 Year
  Sex: Female
  Weight: 54 kg

DRUGS (20)
  1. TAMOXIFEN [Concomitant]
     Dosage: 20MG
  2. MORPHIN HCL [Concomitant]
  3. ATIVAN [Concomitant]
  4. LASIX [Concomitant]
  5. KYTRIL [Concomitant]
  6. ZOFRAN [Concomitant]
  7. ALDACTONE [Concomitant]
  8. ZOMETA [Suspect]
     Indication: BREAST CANCER
     Dosage: 4 MG
     Route: 042
     Dates: end: 2006
  9. AREDIA [Suspect]
     Route: 042
  10. CHEMOTHERAPEUTICS NOS [Concomitant]
  11. XELODA [Concomitant]
     Indication: BREAST CANCER
     Dosage: 1000 MG, BID
     Route: 048
     Dates: start: 200408
  12. ANCEF [Concomitant]
     Route: 042
  13. DEMEROL [Concomitant]
     Dosage: 50 MG
     Route: 030
  14. VISTARIL [Concomitant]
     Dosage: 25 MG
     Route: 030
  15. VISTARIL [Concomitant]
     Dosage: 50 MG, UNK
     Route: 030
  16. HALCION [Concomitant]
     Dosage: 0.25 MG, QHS
     Route: 048
  17. TYLENOL [Concomitant]
  18. PNEUMOVAX [Concomitant]
     Route: 030
  19. HORMONES [Concomitant]
  20. FEMARA [Concomitant]
     Dosage: 2.5 MG

REACTIONS (62)
  - Neoplasm progression [Fatal]
  - Malignant neoplasm progression [Fatal]
  - Carbohydrate antigen 27.29 increased [Fatal]
  - Osteonecrosis of jaw [Unknown]
  - Bone disorder [Unknown]
  - Deformity [Unknown]
  - Pain [Unknown]
  - Hypophagia [Unknown]
  - Emotional distress [Unknown]
  - Anxiety [Unknown]
  - General physical health deterioration [Unknown]
  - Decreased interest [Unknown]
  - Gingival swelling [Unknown]
  - Pain in jaw [Unknown]
  - Osteomyelitis [Unknown]
  - Impaired healing [Unknown]
  - Metastases to bone [Unknown]
  - Metastases to liver [Unknown]
  - Ascites [Unknown]
  - Fluid retention [Unknown]
  - Electrolyte imbalance [Unknown]
  - Abasia [Unknown]
  - Dehydration [Unknown]
  - Nail disorder [Unknown]
  - Dysaesthesia [Unknown]
  - Erythema [Unknown]
  - Metastases to spine [Unknown]
  - Lymphadenopathy [Unknown]
  - Pleural effusion [Unknown]
  - Aspartate aminotransferase increased [Unknown]
  - Blood glucose increased [Unknown]
  - Alanine aminotransferase increased [Unknown]
  - Blood follicle stimulating hormone increased [Unknown]
  - Hepatic lesion [Unknown]
  - Intervertebral disc degeneration [Unknown]
  - Fall [Unknown]
  - Head injury [Unknown]
  - Renal failure acute [Unknown]
  - Hyponatraemia [Unknown]
  - Hyperkalaemia [Unknown]
  - Generalised oedema [Unknown]
  - Hypotension [Unknown]
  - Restlessness [Unknown]
  - Depressed level of consciousness [Unknown]
  - Asthenia [Unknown]
  - Incontinence [Unknown]
  - Diarrhoea [Unknown]
  - Dry mouth [Unknown]
  - Dizziness [Unknown]
  - Coma [Unknown]
  - Pneumonia [Unknown]
  - Dyspnoea [Unknown]
  - Alopecia [Unknown]
  - Osteoarthritis [Unknown]
  - Osteosclerosis [Unknown]
  - Pericardial effusion [Unknown]
  - Metastases to peritoneum [Unknown]
  - Urinary retention [Unknown]
  - Ecchymosis [Unknown]
  - Hepatic failure [Unknown]
  - Breast cancer metastatic [Unknown]
  - Metastases to skin [Unknown]
